FAERS Safety Report 25204539 (Version 1)
Quarter: 2025Q2

REPORT INFORMATION
  Report Type: Report from Study
  Country: US (occurrence: US)
  Receive Date: 20250416
  Receipt Date: 20250416
  Transmission Date: 20250717
  Serious: Yes (Other)
  Sender: Unknown Manufacturer
  Company Number: US-MTPC-MTPA2025-0006837

PATIENT
  Age: 78 Year
  Sex: Male

DRUGS (2)
  1. RADICAVA ORS [Suspect]
     Active Substance: EDARAVONE
     Indication: Amyotrophic lateral sclerosis
     Dosage: 5 MILLILITER, QD AS DIRECTED
     Route: 048
     Dates: end: 20250403
  2. RADICAVA ORS [Suspect]
     Active Substance: EDARAVONE
     Indication: Amyotrophic lateral sclerosis
     Dosage: 5 MILLILITER, QD AS DIRECTED
     Route: 048
     Dates: end: 20250403

REACTIONS (5)
  - Confusional state [Unknown]
  - Somnolence [Unknown]
  - Mental status changes [Unknown]
  - Pain in extremity [Unknown]
  - Headache [Unknown]
